FAERS Safety Report 8850640 (Version 3)
Quarter: 2012Q4

REPORT INFORMATION
  Report Type: 
  Country: US (occurrence: US)
  Receive Date: 20121019
  Receipt Date: 20121115
  Transmission Date: 20130627
  Serious: Yes (Hospitalization, Other)
  Sender: FDA-Public Use
  Company Number: US-009507513-1204USA00473

PATIENT

DRUGS (7)
  1. FOSAMAX [Suspect]
     Indication: OSTEOPOROSIS
     Dosage: 70mg weekly
     Route: 048
     Dates: start: 20020116, end: 20080118
  2. FOSAMAX [Suspect]
     Dosage: 70 mg,qw
     Route: 048
     Dates: start: 20070719, end: 20080725
  3. FOSAMAX [Suspect]
     Dosage: 70 mg, qw
     Dates: start: 2010, end: 2010
  4. ALENDRONATE SODIUM [Suspect]
     Indication: OSTEOPOROSIS
     Dosage: 70 mg, qw
     Route: 048
     Dates: start: 200802
  5. FOSAMAX [Suspect]
     Indication: OSTEOPOROSIS
     Dosage: 70 mg, UNK
     Route: 048
     Dates: start: 20080317
  6. ACTONEL [Suspect]
     Indication: OSTEOPOROSIS
     Dosage: 150 mg, qm
     Route: 048
     Dates: start: 2008, end: 2009
  7. ACTONEL [Suspect]
     Dosage: 150 mg, qm
     Dates: start: 2010

REACTIONS (40)
  - Femur fracture [Unknown]
  - Intramedullary rod insertion [Unknown]
  - Intramedullary rod insertion [Unknown]
  - Ankle arthroplasty [Unknown]
  - Biopsy breast [Unknown]
  - Femur fracture [Unknown]
  - Internal fixation of fracture [Unknown]
  - Internal fixation of fracture [Unknown]
  - Cholecystectomy [Unknown]
  - Hemiparesis [Unknown]
  - Fall [Unknown]
  - Blood cholesterol increased [Unknown]
  - Contusion [Unknown]
  - Cardiovascular insufficiency [Unknown]
  - Cardiovascular insufficiency [Unknown]
  - Bronchitis [Unknown]
  - Bronchitis [Unknown]
  - Abdominal operation [Unknown]
  - Female sterilisation [Unknown]
  - Deep vein thrombosis [Unknown]
  - Low turnover osteopathy [Unknown]
  - Anxiety disorder [Not Recovered/Not Resolved]
  - Depression [Unknown]
  - Fracture [Unknown]
  - Fibrocystic breast disease [Unknown]
  - Artificial menopause [Unknown]
  - Mammary duct ectasia [Unknown]
  - Premenstrual syndrome [Unknown]
  - Fracture nonunion [Unknown]
  - Fall [Unknown]
  - Rib fracture [Unknown]
  - Kyphosis [Unknown]
  - Scoliosis [Unknown]
  - Fall [Unknown]
  - Phlebitis [Unknown]
  - Thrombophlebitis [Not Recovered/Not Resolved]
  - Dyslipidaemia [Unknown]
  - Back pain [Not Recovered/Not Resolved]
  - Fatigue [Unknown]
  - Malaise [Unknown]
